FAERS Safety Report 12488756 (Version 1)
Quarter: 2016Q2

REPORT INFORMATION
  Report Type: Spontaneous
  Country: CH (occurrence: CH)
  Receive Date: 20160622
  Receipt Date: 20160622
  Transmission Date: 20160815
  Serious: Yes (Death)
  Sender: FDA-Public Use
  Company Number: CH-PFIZER INC-2016306709

PATIENT
  Age: 78 Year
  Sex: Female
  Weight: 66 kg

DRUGS (10)
  1. ISOPTIN [Concomitant]
     Active Substance: VERAPAMIL HYDROCHLORIDE
     Indication: HYPERTENSION
     Dosage: 80 MG, 1X/DAY (1-0-0-0)
     Route: 048
  2. ESOMEPRAZOL AXAPHARM [Concomitant]
     Dosage: 20 MG, 1X/DAY (0-0-1-0)
     Route: 048
  3. DEANXIT [Concomitant]
     Active Substance: FLUPENTIXOL DIHYDROCHLORIDE\MELITRACEN HYDROCHLORIDE
     Indication: ANXIETY DISORDER
  4. AKINETON [Concomitant]
     Active Substance: BIPERIDEN HYDROCHLORIDE
     Indication: MOVEMENT DISORDER
     Dosage: 1 MG, 2X/DAY (2MG, 1/2-0-1/2-0)
     Route: 048
  5. VITAMIN D3 WILD [Concomitant]
     Dosage: 15 GTT, 1X/DAY (0-0-15-0)
     Route: 048
  6. TRANXILIUM [Concomitant]
     Active Substance: CLORAZEPATE DIPOTASSIUM
     Dosage: 10 MG, 1X/DAY
     Route: 048
  7. TAZOBAC [Suspect]
     Active Substance: PIPERACILLIN SODIUM\TAZOBACTAM SODIUM
     Dosage: 4.5 G, 3X/DAY
     Route: 042
     Dates: start: 20160416, end: 20160418
  8. DEANXIT [Concomitant]
     Active Substance: FLUPENTIXOL DIHYDROCHLORIDE\MELITRACEN HYDROCHLORIDE
     Indication: DEPRESSION
     Dosage: 1 DF, 1X/DAY (1-0-0-0)
     Route: 048
  9. MIANSERIN-MEPHA [Concomitant]
     Indication: DEPRESSION
     Dosage: 15 MG, 1X/DAY (30 MG, 0-0-0.5-0)
     Route: 048
  10. TORASEMID [Concomitant]
     Active Substance: TORSEMIDE
     Indication: OEDEMA PERIPHERAL
     Dosage: 5 MG, 2X/DAY (2-0-0-0)
     Route: 048

REACTIONS (2)
  - Colitis [Fatal]
  - General physical health deterioration [Fatal]

NARRATIVE: CASE EVENT DATE: 20160426
